FAERS Safety Report 9328893 (Version 1)
Quarter: 2013Q2

REPORT INFORMATION
  Report Type: Spontaneous
  Country: US (occurrence: None)
  Receive Date: 20130531
  Receipt Date: 20130531
  Transmission Date: 20140414
  Serious: Yes (Other)
  Sender: FDA-Public Use
  Company Number: CA-ALSI-201300124

PATIENT
  Age: 57 Year
  Sex: Male
  Weight: 75 kg

DRUGS (5)
  1. NITROUS OXIDE [Suspect]
     Dosage: RESPIRATORY
  2. FORANE [Suspect]
     Dosage: RESPIRATORY
  3. (FENTANYL) [Concomitant]
  4. PENTOTHAL (THIOPENTAL) [Concomitant]
  5. (SUCCINYLCHOLINE ) [Concomitant]

REACTIONS (1)
  - Bronchospasm [None]
